FAERS Safety Report 7122261-0 (Version None)
Quarter: 2010Q4

REPORT INFORMATION
  Report Type: 
  Country: None (occurrence: None)
  Receive Date: 20101122
  Receipt Date: 20101122
  Transmission Date: 20110411
  Serious: Yes (Other)
  Sender: FDA-Public Use
  Company Number: None

PATIENT
  Age: 78 Year
  Sex: Male
  Weight: 79.1 kg

DRUGS (1)
  1. CIPROFLOXACIN [Suspect]
     Dosage: 2 PILLS PER DAY
     Dates: start: 20101030

REACTIONS (1)
  - NECK PAIN [None]
